FAERS Safety Report 6422747-8 (Version None)
Quarter: 2009Q4

REPORT INFORMATION
  Report Type: 
  Country: None (occurrence: None)
  Receive Date: 20091028
  Receipt Date: 20091020
  Transmission Date: 20100525
  Serious: Yes (Hospitalization)
  Sender: FDA-Public Use
  Company Number: 2009004620

PATIENT
  Age: 59 Year
  Sex: Male
  Weight: 58.9676 kg

DRUGS (3)
  1. ACTIQ [Suspect]
     Indication: ARTHRALGIA
     Dosage: (1600 MCG,EVERY 4-6 HOURS AS NEEDED),BU
     Route: 002
     Dates: start: 20030101, end: 20090501
  2. ACTIQ [Suspect]
     Indication: SPINAL CORD DISORDER
     Dosage: (1600 MCG,EVERY 4-6 HOURS AS NEEDED),BU
     Route: 002
     Dates: start: 20030101, end: 20090501
  3. OXYCODONE [Concomitant]

REACTIONS (2)
  - CHEST DISCOMFORT [None]
  - CHEST PAIN [None]
